FAERS Safety Report 4971176-2 (Version None)
Quarter: 2006Q1

REPORT INFORMATION
  Report Type: 
  Country: None (occurrence: None)
  Receive Date: 20060222
  Receipt Date: 20050720
  Transmission Date: 20060701
  Serious: Yes (Other)
  Sender: FDA-Public Use
  Company Number: HQWYE408422JUL05

PATIENT
  Age: 64 Year
  Sex: Male
  Weight: 72.64 kg

DRUGS (1)
  1. PROTONIX [Suspect]
     Indication: DYSPEPSIA
     Dosage: 40 MG 1X PER 1 DAY, ORAL
     Route: 048
     Dates: start: 20041101

REACTIONS (2)
  - DRUG EFFECT DECREASED [None]
  - FAECES PALE [None]
